FAERS Safety Report 19259066 (Version 2)
Quarter: 2021Q4

REPORT INFORMATION
  Report Type: Spontaneous
  Country: US (occurrence: US)
  Receive Date: 20210514
  Receipt Date: 20211007
  Transmission Date: 20220303
  Serious: Yes (Other)
  Sender: FDA-Public Use
  Company Number: US-SA-SAC20210512001040

PATIENT
  Age: 72 Year
  Sex: Male

DRUGS (16)
  1. DUPIXENT [Suspect]
     Active Substance: DUPILUMAB
     Indication: Dermatitis atopic
     Dosage: 300 MG, QOW
     Route: 058
  2. DUPIXENT [Suspect]
     Active Substance: DUPILUMAB
     Indication: Dermatitis allergic
  3. TRIAMCINOLONE ACETONIDE [Concomitant]
     Active Substance: TRIAMCINOLONE ACETONIDE
     Dosage: 180 MG
  4. INCRUSE ELLIPTA [Concomitant]
     Active Substance: UMECLIDINIUM BROMIDE
  5. PERFOROMIST [Concomitant]
     Active Substance: FORMOTEROL FUMARATE DIHYDRATE
  6. ALLEGRA ALLERGY [Concomitant]
     Active Substance: FEXOFENADINE HYDROCHLORIDE
  7. IRBESARTAN [Concomitant]
     Active Substance: IRBESARTAN
  8. BUPROPION [Concomitant]
     Active Substance: BUPROPION
     Dosage: UNK UNK, QD
  9. CLONAZEPAM [Concomitant]
     Active Substance: CLONAZEPAM
  10. OXYGEN [Concomitant]
     Active Substance: OXYGEN
  11. FISH OIL [Concomitant]
     Active Substance: FISH OIL
  12. VITAMINS NOS [Concomitant]
     Active Substance: VITAMINS
  13. EUCERIN [PARAFFIN, LIQUID;PETROLATUM;WOOL FAT] [Concomitant]
  14. METFORMIN HYDROCHLORIDE [Concomitant]
     Active Substance: METFORMIN HYDROCHLORIDE
     Dosage: 150 MG
  15. EUCERIN [UREA] [Concomitant]
  16. METFORMIN [Concomitant]
     Active Substance: METFORMIN HYDROCHLORIDE
     Dosage: 150MG

REACTIONS (2)
  - Chronic obstructive pulmonary disease [Unknown]
  - Product use in unapproved indication [Unknown]
